FAERS Safety Report 24296703 (Version 1)
Quarter: 2024Q3

REPORT INFORMATION
  Report Type: Report from Study
  Country: CA (occurrence: CA)
  Receive Date: 20240909
  Receipt Date: 20240909
  Transmission Date: 20241017
  Serious: Yes (Other)
  Sender: ABBVIE
  Company Number: CA-ABBVIE-5908131

PATIENT
  Age: 74 Year
  Sex: Male

DRUGS (1)
  1. RINVOQ [Suspect]
     Active Substance: UPADACITINIB
     Indication: Ankylosing spondylitis
     Dosage: FORM STRENGTH: 15 MILLIGRAM
     Route: 048
     Dates: start: 20240419, end: 20240903

REACTIONS (6)
  - Skin cancer [Unknown]
  - Acne [Unknown]
  - Dyspepsia [Unknown]
  - Thrombosis [Unknown]
  - Amnesia [Unknown]
  - Migraine [Unknown]

NARRATIVE: CASE EVENT DATE: 20240101
